FAERS Safety Report 4512082-7 (Version None)
Quarter: 2004Q4

REPORT INFORMATION
  Report Type: 
  Country: None (occurrence: None)
  Receive Date: 20041129
  Receipt Date: 20040311
  Transmission Date: 20050328
  Serious: Yes (Hospitalization)
  Sender: FDA-Public Use
  Company Number: US-ROCHE-361469

PATIENT
  Age: 33 Year
  Sex: Male

DRUGS (8)
  1. CAPECITABINE [Suspect]
     Dosage: GIVEN FROM MONDAY TO FRIDAY.
     Route: 048
     Dates: start: 20031103
  2. BEVACIZUMAB [Suspect]
     Route: 042
     Dates: start: 20031103
  3. OXALIPLATIN [Suspect]
     Route: 042
     Dates: start: 20031103
  4. PAXIL [Concomitant]
  5. PROTONIX [Concomitant]
  6. OXYCONTIN [Concomitant]
  7. DICYCLOMINE [Concomitant]
  8. ZOFRAN [Concomitant]

REACTIONS (3)
  - ABDOMINAL HERNIA [None]
  - WOUND DEHISCENCE [None]
  - WOUND INFECTION [None]
